FAERS Safety Report 7628840-6 (Version None)
Quarter: 2011Q3

REPORT INFORMATION
  Report Type: 
  Country: None (occurrence: None)
  Receive Date: 20110722
  Receipt Date: 20110616
  Transmission Date: 20111222
  Serious: No
  Sender: FDA-Public Use
  Company Number: US-BAYER-2011-053156

PATIENT
  Sex: Female

DRUGS (4)
  1. LORTAB [Concomitant]
     Dosage: 1 DF, ONCE
     Route: 048
     Dates: start: 20110615
  2. ANTIHISTAMINES [Concomitant]
     Dosage: 1 DF, ONCE
     Route: 048
     Dates: start: 20110615
  3. ALEVE (CAPLET) [Suspect]
     Dosage: 440 MG, ONCE
     Dates: start: 20110615
  4. MUSCLE RELAXANTS [Concomitant]
     Dosage: 1 DF, ONCE
     Route: 048
     Dates: start: 20110615

REACTIONS (1)
  - HYPERSOMNIA [None]
